FAERS Safety Report 4911180-3 (Version None)
Quarter: 2006Q1

REPORT INFORMATION
  Report Type: 
  Country: None (occurrence: None)
  Receive Date: 20060209
  Receipt Date: 20060203
  Transmission Date: 20060701
  Serious: Yes (Other)
  Sender: FDA-Public Use
  Company Number: A600253310/WAES0601USA03433

PATIENT
  Age: 63 Year
  Sex: Male

DRUGS (9)
  1. MYOCHRYSINE [Suspect]
     Indication: RHEUMATOID ARTHRITIS
     Dosage: 50 MG, MONTHLY, IM
     Route: 030
     Dates: start: 19840101, end: 20020101
  2. ISOSORBIDE MONONITRATE [Concomitant]
  3. ATORVASTATIN CALCIUM [Concomitant]
  4. AMLODIPINE BESYLATE [Concomitant]
  5. ASPIRIN [Concomitant]
  6. RAMIPRIL [Concomitant]
  7. NICORANDIL [Concomitant]
  8. CLOPIDOGREL BISULFATE [Concomitant]
  9. PREDNISOLONE [Concomitant]

REACTIONS (6)
  - ANGINA PECTORIS [None]
  - DRUG INTERACTION [None]
  - HYPOTENSION [None]
  - MALAISE [None]
  - NAUSEA [None]
  - SYNCOPE VASOVAGAL [None]
